FAERS Safety Report 5053145-X (Version None)
Quarter: 2006Q3

REPORT INFORMATION
  Report Type: 
  Country: None (occurrence: None)
  Receive Date: 20060712
  Receipt Date: 20060621
  Transmission Date: 20061208
  Serious: Yes (Other)
  Sender: FDA-Public Use
  Company Number: US200606004782

PATIENT
  Age: 6 Year

DRUGS (1)
  1. STRATTERA [Suspect]
     Dosage: 25 MG, OTHER, ORAL
     Route: 048

REACTIONS (5)
  - ACCIDENTAL EXPOSURE [None]
  - AGITATION [None]
  - BLOOD PRESSURE SYSTOLIC INCREASED [None]
  - HEART RATE INCREASED [None]
  - RASH [None]
